FAERS Safety Report 9143994 (Version 1)
Quarter: 2013Q1

REPORT INFORMATION
  Report Type: Spontaneous
  Country: FR (occurrence: FR)
  Receive Date: 20130306
  Receipt Date: 20130306
  Transmission Date: 20140127
  Serious: Yes (Hospitalization)
  Sender: FDA-Public Use
  Company Number: FR-ASTRAZENECA-2013SE12979

PATIENT
  Age: 34712 Day
  Sex: Female

DRUGS (14)
  1. INEXIUM [Suspect]
     Route: 048
     Dates: end: 20121211
  2. INEXIUM [Suspect]
     Route: 048
     Dates: start: 20121212
  3. TEGRETOL [Suspect]
     Route: 048
     Dates: end: 20121211
  4. DAFALGAN [Suspect]
     Route: 048
     Dates: end: 20121211
  5. BISOPROLOL [Concomitant]
     Route: 048
     Dates: end: 20121211
  6. BISOPROLOL [Concomitant]
     Route: 048
     Dates: start: 20121212
  7. KARDEGIC [Concomitant]
     Dosage: 75 MG
     Route: 048
     Dates: end: 20121211
  8. KARDEGIC [Concomitant]
     Route: 048
     Dates: start: 20121212
  9. ZOLOFT [Concomitant]
     Route: 048
     Dates: end: 20121211
  10. ZOLOFT [Concomitant]
     Route: 048
     Dates: start: 20121212
  11. ATARAX [Concomitant]
     Route: 048
     Dates: end: 20121211
  12. ATARAX [Concomitant]
     Route: 048
     Dates: start: 20121212
  13. TRANSIPEG [Concomitant]
     Route: 048
     Dates: end: 20121211
  14. TRANSIPEG [Concomitant]
     Route: 048
     Dates: start: 20121212

REACTIONS (2)
  - Anaemia [Unknown]
  - Hepatocellular injury [Recovering/Resolving]
